FAERS Safety Report 9113335 (Version 3)
Quarter: 2013Q3

REPORT INFORMATION
  Report Type: Spontaneous
  Country: JP (occurrence: JP)
  Receive Date: 20130211
  Receipt Date: 20130729
  Transmission Date: 20140515
  Serious: Yes (Hospitalization)
  Sender: FDA-Public Use
  Company Number: JP-VERTEX PHARMACEUTICALS INC.-2013-001769

PATIENT
  Age: 64 Year
  Sex: Female

DRUGS (5)
  1. TELAVIC [Suspect]
     Indication: CHRONIC HEPATITIS C
     Dosage: 1500 MG, QD
     Route: 048
     Dates: start: 20130116, end: 20130125
  2. REBETOL [Concomitant]
     Dosage: 400 MG, QD
     Route: 048
     Dates: start: 20130116
  3. PEGINTRON [Concomitant]
     Dosage: 1.5 ?G/KG, WEEKLY
     Route: 058
     Dates: start: 20130116, end: 20130205
  4. PEGINTRON [Concomitant]
     Dosage: 0.75 ?G/KG, WEEKLY
     Route: 058
     Dates: start: 20130212
  5. URSODEOXYCHOLIC ACID [Concomitant]
     Dosage: 6 DF, QD
     Route: 048

REACTIONS (1)
  - Drug eruption [Recovered/Resolved]
